FAERS Safety Report 18672513 (Version 3)
Quarter: 2021Q1

REPORT INFORMATION
  Report Type: Report from Study
  Country: JP (occurrence: JP)
  Receive Date: 20201228
  Receipt Date: 20210108
  Transmission Date: 20210419
  Serious: Yes (Life-Threatening, Hospitalization)
  Sender: FDA-Public Use
  Company Number: JP-JNJFOC-A-CH2019-196366

PATIENT
  Age: 22 Year
  Sex: Female

DRUGS (16)
  1. FUROSEMIDE. [Concomitant]
     Active Substance: FUROSEMIDE
     Route: 048
     Dates: start: 20161228
  2. EPOPROSTENOL ACT [Suspect]
     Active Substance: EPOPROSTENOL
     Dosage: 21.4NG/KG/MIN
     Route: 041
     Dates: start: 20170322
  3. OPSUMIT [Suspect]
     Active Substance: MACITENTAN
     Indication: PULMONARY ARTERIAL HYPERTENSION
     Dosage: 10 MG, OD
     Route: 048
     Dates: start: 20160516
  4. FERROUS CITRATE NA [Concomitant]
     Active Substance: SODIUM FERROUS CITRATE
     Indication: IRON DEFICIENCY ANAEMIA
     Route: 048
     Dates: start: 20140305
  5. EPOPROSTENOL ACT [Suspect]
     Active Substance: EPOPROSTENOL
     Indication: PULMONARY ARTERIAL HYPERTENSION
     Dosage: 24 NG/KG/MIN
     Route: 041
     Dates: start: 20161106
  6. XYZAL [Concomitant]
     Active Substance: LEVOCETIRIZINE DIHYDROCHLORIDE
     Indication: RHINITIS ALLERGIC
     Route: 048
     Dates: start: 20170517, end: 20170621
  7. DIURETICS [Concomitant]
     Active Substance: UNSPECIFIED INGREDIENT
     Indication: PALPITATIONS
     Route: 065
  8. EPOPROSTENOL ACT [Suspect]
     Active Substance: EPOPROSTENOL
     Dosage: 19.1NG/KG/MIN
     Route: 041
     Dates: start: 20161129, end: 20170322
  9. FUROSEMIDE. [Concomitant]
     Active Substance: FUROSEMIDE
     Indication: RIGHT VENTRICULAR FAILURE
     Route: 048
     Dates: start: 20061013, end: 20161228
  10. SPIRONOLACTONE. [Concomitant]
     Active Substance: SPIRONOLACTONE
     Route: 048
     Dates: start: 20161228
  11. MERCAZOLE [THIAMAZOLE] [Concomitant]
     Active Substance: METHIMAZOLE
     Indication: HYPERTHYROIDISM
     Route: 048
     Dates: start: 20170621
  12. EPOPROSTENOL ACT [Suspect]
     Active Substance: EPOPROSTENOL
     Dosage: 17.13 NG/KG/MIN
     Route: 041
     Dates: start: 20161129
  13. ADCIRCA [Suspect]
     Active Substance: TADALAFIL
     Indication: PULMONARY ARTERIAL HYPERTENSION
     Route: 048
     Dates: start: 20130206
  14. SPIRONOLACTONE. [Concomitant]
     Active Substance: SPIRONOLACTONE
     Indication: RIGHT VENTRICULAR FAILURE
     Route: 048
     Dates: start: 20061013, end: 20161228
  15. OXYGEN. [Concomitant]
     Active Substance: OXYGEN
     Route: 055
  16. RINDERON VG [Concomitant]
     Active Substance: BETAMETHASONE VALERATE\GENTAMICIN SULFATE
     Indication: PROPHYLAXIS
     Route: 061
     Dates: start: 20170614, end: 20170621

REACTIONS (6)
  - Pericoronitis [Recovered/Resolved]
  - Rhinitis allergic [Recovered/Resolved]
  - Device occlusion [Recovered/Resolved]
  - Palpitations [Recovered/Resolved]
  - Pharyngeal haemorrhage [Recovered/Resolved]
  - Haemoptysis [Recovered/Resolved]

NARRATIVE: CASE EVENT DATE: 20161228
